FAERS Safety Report 10382338 (Version 1)
Quarter: 2014Q3

REPORT INFORMATION
  Report Type: Spontaneous
  Country: US (occurrence: None)
  Receive Date: 20140811
  Receipt Date: 20140811
  Transmission Date: 20150326
  Serious: Yes (Other)
  Sender: FDA-Public Use
  Company Number: 2472919

PATIENT
  Age: 33 Year
  Sex: Male

DRUGS (2)
  1. PROPOFOL. [Suspect]
     Active Substance: PROPOFOL
     Indication: ENDOTRACHEAL INTUBATION
  2. PROPOFOL. [Suspect]
     Active Substance: PROPOFOL
     Indication: SEDATION

REACTIONS (1)
  - Hepatitis acute [None]
